FAERS Safety Report 6655660-1 (Version None)
Quarter: 2010Q1

REPORT INFORMATION
  Report Type: 
  Country: None (occurrence: None)
  Receive Date: 20100326
  Receipt Date: 20100326
  Transmission Date: 20100710
  Serious: Yes (Life-Threatening, Hospitalization)
  Sender: FDA-Public Use
  Company Number: None

PATIENT
  Age: 67 Year
  Sex: Male

DRUGS (1)
  1. LITHIUM CARBONATE [Suspect]
     Indication: BIPOLAR I DISORDER
     Dosage: 300 MG TID PO
     Route: 048
     Dates: start: 20050620, end: 20100318

REACTIONS (5)
  - AGITATION [None]
  - ANTIPSYCHOTIC DRUG LEVEL INCREASED [None]
  - APHASIA [None]
  - CONFUSIONAL STATE [None]
  - DELIRIUM [None]
